FAERS Safety Report 6885324-0 (Version None)
Quarter: 2010Q3

REPORT INFORMATION
  Report Type: 
  Country: None (occurrence: None)
  Receive Date: 20100729
  Receipt Date: 20100729
  Transmission Date: 20110219
  Serious: Yes (Life-Threatening, Hospitalization, Disabling)
  Sender: FDA-Public Use
  Company Number: None

PATIENT
  Sex: Female
  Weight: 53.5244 kg

DRUGS (1)
  1. MIRENA [Suspect]
     Indication: PREGNANCY
     Dates: start: 20080301, end: 20100521

REACTIONS (3)
  - ECTOPIC PREGNANCY [None]
  - HAEMORRHAGE [None]
  - OVARIAN RUPTURE [None]
